FAERS Safety Report 21407453 (Version 1)
Quarter: 2022Q4

REPORT INFORMATION
  Report Type: Report from Study
  Country: GB (occurrence: GB)
  Receive Date: 20221004
  Receipt Date: 20221004
  Transmission Date: 20230113
  Serious: Yes (Hospitalization)
  Sender: FDA-Public Use
  Company Number: GB-TAKEDA-GB201847221

PATIENT
  Age: 11 Year
  Sex: Male

DRUGS (64)
  1. IDURSULFASE [Suspect]
     Active Substance: IDURSULFASE
     Indication: Mucopolysaccharidosis II
     Dosage: 0.55 MILLIGRAM/KILOGRAM, 1/WEEK
     Route: 042
     Dates: start: 20070404
  2. IDURSULFASE [Suspect]
     Active Substance: IDURSULFASE
     Dosage: 0.5 MILLIGRAM/KILOGRAM, 1/WEEK
     Route: 042
     Dates: start: 20080923
  3. IDURSULFASE [Suspect]
     Active Substance: IDURSULFASE
     Dosage: 0.55 MILLIGRAM/KILOGRAM, 1/WEEK
     Route: 042
     Dates: start: 20120315, end: 20140102
  4. MELATONIN [Concomitant]
     Active Substance: MELATONIN
     Indication: Nervous system disorder
     Dosage: UNK
     Route: 048
     Dates: start: 2002, end: 2011
  5. CEPHRADINE [Concomitant]
     Active Substance: CEPHRADINE
     Indication: Anti-infective therapy
     Dosage: UNK
     Route: 048
     Dates: start: 200303, end: 200303
  6. TRIMETHOPRIM [Concomitant]
     Active Substance: TRIMETHOPRIM
     Indication: Anti-infective therapy
     Dosage: UNK
     Route: 048
     Dates: start: 200303
  7. DICLOFENAC [Concomitant]
     Active Substance: DICLOFENAC
     Indication: Pain
     Dosage: UNK
     Route: 048
     Dates: start: 20030403, end: 20030406
  8. ONDANSETRON [Concomitant]
     Active Substance: ONDANSETRON
     Dosage: UNK
     Route: 048
     Dates: start: 20030403, end: 20030404
  9. CODEINE PHOSPHATE [Concomitant]
     Active Substance: CODEINE PHOSPHATE
     Indication: Pain
     Dosage: UNK
     Route: 048
     Dates: start: 20030404
  10. BECLOMETHASONE DIPROPIONATE [Concomitant]
     Active Substance: BECLOMETHASONE DIPROPIONATE
     Indication: Respiratory disorder
     Dosage: UNK
     Route: 055
     Dates: start: 20030520
  11. PREDNISOLONE [Concomitant]
     Active Substance: PREDNISOLONE
     Indication: Respiratory disorder
     Dosage: UNK
     Route: 048
     Dates: start: 20030520, end: 20030525
  12. ALBUTEROL [Concomitant]
     Active Substance: ALBUTEROL
     Indication: Respiratory disorder
     Dosage: UNK
     Route: 048
     Dates: start: 20030520, end: 20030525
  13. AUGMENTIN [Concomitant]
     Active Substance: AMOXICILLIN\CLAVULANATE POTASSIUM
  14. CIPROFLOXACIN [Concomitant]
     Active Substance: CIPROFLOXACIN
  15. ACETAMINOPHEN [Concomitant]
     Active Substance: ACETAMINOPHEN
  16. LACTULOSE [Concomitant]
     Active Substance: LACTULOSE
     Route: 065
  17. SENNA [Concomitant]
     Active Substance: SENNA LEAF\SENNOSIDES\SENNOSIDES A AND B
     Route: 065
  18. AMOXICILLIN [Concomitant]
     Active Substance: AMOXICILLIN
     Dosage: UNK
     Route: 065
  19. FLUCLOXACILLIN [Concomitant]
     Active Substance: FLUCLOXACILLIN
     Dosage: UNK
     Route: 065
  20. BUDESONIDE [Concomitant]
     Active Substance: BUDESONIDE
     Route: 065
  21. LORATADINE [Concomitant]
     Active Substance: LORATADINE
     Route: 065
  22. ENALAPRIL [Concomitant]
     Active Substance: ENALAPRIL
     Route: 065
  23. CEFACLOR [Concomitant]
     Active Substance: CEFACLOR
  24. ERYTHROMYCIN [Concomitant]
     Active Substance: ERYTHROMYCIN
  25. ATROVENT [Concomitant]
     Active Substance: IPRATROPIUM BROMIDE
  26. ENOXAPARIN SODIUM [Concomitant]
     Active Substance: ENOXAPARIN SODIUM
  27. ASPIRIN [Concomitant]
     Active Substance: ASPIRIN
  28. GENTISONE HC EAR DROPS [Concomitant]
  29. SERETIDE [Concomitant]
     Active Substance: FLUTICASONE PROPIONATE\SALMETEROL XINAFOATE
  30. MOVICOL [Concomitant]
     Active Substance: POLYETHYLENE GLYCOL 3350\POTASSIUM CHLORIDE\SODIUM BICARBONATE\SODIUM CHLORIDE
  31. OMEPRAZOLE [Concomitant]
     Active Substance: OMEPRAZOLE
  32. CEFOTAXIME [Concomitant]
     Active Substance: CEFOTAXIME SODIUM
  33. CEFTAZIDIME [Concomitant]
     Active Substance: CEFTAZIDIME
  34. TOBRAMYCIN [Concomitant]
     Active Substance: TOBRAMYCIN
  35. MEROPENEM [Concomitant]
     Active Substance: MEROPENEM
  36. AMOXICILLIN\CLAVULANATE POTASSIUM [Concomitant]
     Active Substance: AMOXICILLIN\CLAVULANATE POTASSIUM
     Route: 065
  37. Colomycin [Concomitant]
  38. HEPARIN SODIUM [Concomitant]
     Active Substance: HEPARIN SODIUM
  39. Hypertonic [Concomitant]
  40. CARBAMAZEPINE [Concomitant]
     Active Substance: CARBAMAZEPINE
     Route: 065
  41. SODIUM CHLORIDE [Concomitant]
     Active Substance: SODIUM CHLORIDE
  42. MIDAZOLAM [Concomitant]
     Active Substance: MIDAZOLAM
     Route: 065
  43. AMOROLFINE [Concomitant]
     Active Substance: AMOROLFINE
     Route: 065
  44. Calogen [Concomitant]
  45. CHLORPHENIRAMINE MALEATE [Concomitant]
     Active Substance: CHLORPHENIRAMINE MALEATE
     Route: 065
  46. DIAZEPAM [Concomitant]
     Active Substance: DIAZEPAM
  47. FENTANYL [Concomitant]
     Active Substance: FENTANYL
  48. IBUPROFEN [Concomitant]
     Active Substance: IBUPROFEN
     Route: 065
  49. MORPHINE [Concomitant]
     Active Substance: MORPHINE
     Route: 065
  50. NALTREXONE [Concomitant]
     Active Substance: NALTREXONE
  51. OLIVE OIL [Concomitant]
     Active Substance: OLIVE OIL
     Route: 065
  52. SALMETEROL [Concomitant]
     Active Substance: SALMETEROL
     Route: 065
  53. BUTYLSCOPOLAMINE BROMIDE [Concomitant]
     Active Substance: BUTYLSCOPOLAMINE BROMIDE
  54. POTASSIUM CHLORIDE [Concomitant]
     Active Substance: POTASSIUM CHLORIDE
  55. ATRACURIUM [Concomitant]
     Active Substance: ATRACURIUM
  56. TEICOPLANIN [Concomitant]
     Active Substance: TEICOPLANIN
  57. FLUTICASONE [Concomitant]
     Active Substance: FLUTICASONE
  58. OSELTAMIVIR [Concomitant]
     Active Substance: OSELTAMIVIR
  59. ROCURONIUM [Concomitant]
     Active Substance: ROCURONIUM BROMIDE
  60. MICONAZOLE NITRATE [Concomitant]
     Active Substance: MICONAZOLE NITRATE
  61. KETAMINE [Concomitant]
     Active Substance: KETAMINE
  62. SUCRALFATE [Concomitant]
     Active Substance: SUCRALFATE
  63. PEPPERMINT OIL [Concomitant]
     Active Substance: PEPPERMINT OIL
  64. TRIMEPRAZINE [Concomitant]
     Active Substance: TRIMEPRAZINE
     Route: 065

REACTIONS (1)
  - Abdominal distension [Recovered/Resolved]

NARRATIVE: CASE EVENT DATE: 20110101
